FAERS Safety Report 14583881 (Version 1)
Quarter: 2018Q1

REPORT INFORMATION
  Report Type: Spontaneous
  Country: None (occurrence: DE)
  Receive Date: 20180228
  Receipt Date: 20180228
  Transmission Date: 20180509
  Serious: Yes (Other)
  Sender: FDA-Public Use
  Company Number: DE-MEDAC PHARMA, INC.-2042733

PATIENT
  Age: 73 Year
  Sex: Female

DRUGS (5)
  1. SPECTRILA [Suspect]
     Active Substance: ASPARAGINASE
  2. METHOTREXATE. [Suspect]
     Active Substance: METHOTREXATE
     Indication: ACUTE LYMPHOCYTIC LEUKAEMIA
     Route: 039
  3. ASPARAGINASE [Suspect]
     Active Substance: ASPARAGINASE
  4. RITUXIMAB. [Concomitant]
     Active Substance: RITUXIMAB
  5. VINCRISTINE SULFATE. [Concomitant]
     Active Substance: VINCRISTINE SULFATE

REACTIONS (4)
  - Ketoacidosis [Unknown]
  - Drug interaction [Unknown]
  - Paresis [Unknown]
  - Hyperglycaemia [Unknown]
